FAERS Safety Report 9696062 (Version 1)
Quarter: 2013Q4

REPORT INFORMATION
  Report Type: Spontaneous
  Country: US (occurrence: US)
  Receive Date: 20131119
  Receipt Date: 20131119
  Transmission Date: 20140711
  Serious: Yes (Other)
  Sender: FDA-Public Use
  Company Number: US-GLAXOSMITHKLINE-A1049458A

PATIENT
  Age: 59 Year
  Sex: Male

DRUGS (1)
  1. ADVAIR [Suspect]
     Indication: CHRONIC OBSTRUCTIVE PULMONARY DISEASE
     Dosage: 1PUFF PER DAY
     Route: 055
     Dates: start: 2003

REACTIONS (4)
  - Underdose [Unknown]
  - Glaucoma [Not Recovered/Not Resolved]
  - Physical disability [Not Recovered/Not Resolved]
  - Arthropathy [Not Recovered/Not Resolved]
